FAERS Safety Report 11334630 (Version 1)
Quarter: 2015Q3

REPORT INFORMATION
  Report Type: Spontaneous
  Country: US (occurrence: US)
  Receive Date: 20150804
  Receipt Date: 20150804
  Transmission Date: 20151125
  Serious: No
  Sender: FDA-Public Use
  Company Number: US-009507513-1508USA000744

PATIENT
  Sex: Female

DRUGS (1)
  1. BELSOMRA [Suspect]
     Active Substance: SUVOREXANT
     Dosage: 10 MG/UNSPECIFIED, TAKING 10MG BELSOMRA TABLETS BUT IS NOT TAKING ONE EVERY NIGHT
     Route: 048

REACTIONS (2)
  - Drug dose omission [Unknown]
  - Lethargy [Unknown]
